FAERS Safety Report 8995027 (Version 1)
Quarter: 2013Q1

REPORT INFORMATION
  Report Type: Report from Study
  Country: JP (occurrence: JP)
  Receive Date: 20130102
  Receipt Date: 20130102
  Transmission Date: 20140127
  Serious: Yes (Hospitalization)
  Sender: FDA-Public Use
  Company Number: JP-AMGEN-JPNCT2012083679

PATIENT
  Age: 54 Year
  Sex: Female
  Weight: 51 kg

DRUGS (4)
  1. DARBEPOETIN ALFA [Suspect]
     Indication: NEPHROGENIC ANAEMIA
     Dosage: 30 MUG, Q4WK
     Route: 058
     Dates: start: 20110620
  2. NORVASC [Concomitant]
     Indication: HYPERTENSION
     Dosage: UNK
     Route: 048
  3. CALTAN [Concomitant]
     Indication: HYPERTENSION
     Dosage: UNK
     Route: 048
  4. FESIN [Concomitant]
     Dosage: UNK
     Route: 041

REACTIONS (2)
  - Renal failure [Not Recovered/Not Resolved]
  - Hyperphosphataemia [Not Recovered/Not Resolved]
